FAERS Safety Report 7529151-X (Version None)
Quarter: 2011Q2

REPORT INFORMATION
  Report Type: 
  Country: None (occurrence: None)
  Receive Date: 20110607
  Receipt Date: 20110523
  Transmission Date: 20111010
  Serious: No
  Sender: FDA-Public Use
  Company Number: US-B.I. PHARMACEUTICALS,INC./RIDGEFIELD-2011-BP-09030BP

PATIENT
  Sex: Male

DRUGS (9)
  1. NORCO [Concomitant]
  2. SPIRIVA [Suspect]
     Indication: CHRONIC OBSTRUCTIVE PULMONARY DISEASE
     Dosage: 18 MCG
     Route: 055
     Dates: end: 20110217
  3. ELAVIL [Concomitant]
     Dosage: 10 MG
  4. CELEXA [Concomitant]
     Dosage: 80 MG
  5. ALLEGRA [Concomitant]
     Dosage: 180 MG
  6. AVINZA [Concomitant]
     Dosage: 120 MG
  7. SYMBICORT [Concomitant]
  8. ALBUTEROL SULFATE AUTOHALER [Concomitant]
  9. VALIUM [Concomitant]

REACTIONS (1)
  - HALLUCINATION, VISUAL [None]
